FAERS Safety Report 19953101 (Version 1)
Quarter: 2021Q4

REPORT INFORMATION
  Report Type: Spontaneous
  Country: US (occurrence: US)
  Receive Date: 20211013
  Receipt Date: 20211013
  Transmission Date: 20220303
  Serious: No
  Sender: FDA-Public Use
  Company Number: US-REDHILL BIOPHARMA-2020RDH04066

PATIENT
  Sex: Female
  Weight: 90.7 kg

DRUGS (16)
  1. MOVANTIK [Suspect]
     Active Substance: NALOXEGOL OXALATE
     Indication: Constipation
     Dosage: 25 MG, 1X/DAY
     Route: 048
     Dates: start: 202009, end: 202009
  2. UNSPECIFIED PAIN MEDICINE [Concomitant]
  3. SIMVASTATIN [Concomitant]
     Active Substance: SIMVASTATIN
     Dosage: AT NIGHT
  4. PROMETHAZINE [Concomitant]
     Active Substance: PROMETHAZINE HYDROCHLORIDE
  5. AZATHIOPRINE [Concomitant]
     Active Substance: AZATHIOPRINE
  6. OMEPRAZOLE [Concomitant]
     Active Substance: OMEPRAZOLE
  7. LISINOPRIL [Concomitant]
     Active Substance: LISINOPRIL
  8. VITAMIN D2 [Concomitant]
     Active Substance: ERGOCALCIFEROL
     Dosage: 1.25 MG, 1X/WEEK
  9. ^FLUTICONAZOLE^ [Concomitant]
  10. UNSPECIFIED INGREDIENT [Concomitant]
     Active Substance: UNSPECIFIED INGREDIENT
  11. CETIRIZINE [Concomitant]
     Active Substance: CETIRIZINE HYDROCHLORIDE
  12. ASPIRIN [Concomitant]
     Active Substance: ASPIRIN
     Dosage: AT NIGHT
  13. IBUPROFEN [Concomitant]
     Active Substance: IBUPROFEN
  14. BIOTIN [Concomitant]
     Active Substance: BIOTIN
  15. RISEDRONATE SODIUM [Concomitant]
     Active Substance: RISEDRONATE SODIUM
     Dosage: 150 MG, 1X/MONTH
  16. CARISOPRODOL [Concomitant]
     Active Substance: CARISOPRODOL

REACTIONS (4)
  - Abnormal faeces [Not Recovered/Not Resolved]
  - Stress [Unknown]
  - Product administration error [Recovered/Resolved]
  - Drug ineffective [Recovered/Resolved]

NARRATIVE: CASE EVENT DATE: 20200901
